FAERS Safety Report 7931431-0 (Version None)
Quarter: 2011Q4

REPORT INFORMATION
  Report Type: 
  Country: None (occurrence: None)
  Receive Date: 20111121
  Receipt Date: 20111111
  Transmission Date: 20120403
  Serious: Yes (Hospitalization)
  Sender: FDA-Public Use
  Company Number: US-ASTRAZENECA-2011SE68859

PATIENT
  Sex: Female
  Weight: 61 kg

DRUGS (4)
  1. VELCADE [Suspect]
     Indication: BREAST CANCER
     Dosage: 1.6 MG/M2
     Route: 040
     Dates: start: 20110902, end: 20111014
  2. VELCADE [Suspect]
     Route: 040
  3. FULVESTRANT [Suspect]
     Indication: BREAST CANCER
     Route: 030
     Dates: start: 20110902, end: 20110930
  4. FULVESTRANT [Suspect]
     Route: 030

REACTIONS (4)
  - HYPONATRAEMIA [None]
  - HYPOXIA [None]
  - PLEURAL EFFUSION [None]
  - FATIGUE [None]
